FAERS Safety Report 17405313 (Version 6)
Quarter: 2020Q2

REPORT INFORMATION
  Report Type: Report from Study
  Country: US (occurrence: US)
  Receive Date: 20200212
  Receipt Date: 20200405
  Transmission Date: 20200713
  Serious: Yes (Other)
  Sender: FDA-Public Use
  Company Number: NVSC2020US030012

PATIENT
  Sex: Female

DRUGS (1)
  1. BEOVU [Suspect]
     Active Substance: BROLUCIZUMAB-DBLL
     Indication: NEOVASCULAR AGE-RELATED MACULAR DEGENERATION
     Dosage: UNK UNK, QD
     Route: 047
     Dates: start: 20200204

REACTIONS (13)
  - Dizziness [Unknown]
  - Malaise [Unknown]
  - Reading disorder [Unknown]
  - Musculoskeletal discomfort [Unknown]
  - Eye pain [Unknown]
  - Vitreous floaters [Not Recovered/Not Resolved]
  - Confusional state [Unknown]
  - Gait disturbance [Unknown]
  - Upper limb fracture [Unknown]
  - Dysgraphia [Unknown]
  - Visual impairment [Unknown]
  - Cough [Unknown]
  - Visual acuity reduced [Not Recovered/Not Resolved]
